FAERS Safety Report 9778328 (Version 5)
Quarter: 2014Q2

REPORT INFORMATION
  Report Type: Spontaneous
  Country: IL (occurrence: IL)
  Receive Date: 20131223
  Receipt Date: 20140404
  Transmission Date: 20141212
  Serious: Yes (Other)
  Sender: FDA-Public Use
  Company Number: IL-AMGEN-ISRSP2013089151

PATIENT
  Age: 12 Year
  Sex: 0

DRUGS (1)
  1. NPLATE [Suspect]
     Indication: IMMUNE THROMBOCYTOPENIC PURPURA
     Dosage: 1 MUG/KG, UNK
     Route: 065
     Dates: start: 2013, end: 201304

REACTIONS (2)
  - Drug resistance [Unknown]
  - Therapeutic response decreased [Unknown]
